FAERS Safety Report 8430197-8 (Version None)
Quarter: 2012Q2

REPORT INFORMATION
  Report Type: 
  Country: None (occurrence: None)
  Receive Date: 20120604
  Receipt Date: 20120521
  Transmission Date: 20120825
  Serious: Yes (Other)
  Sender: FDA-Public Use
  Company Number: 1204-207

PATIENT
  Age: 86 Year
  Sex: Female

DRUGS (12)
  1. THYROID MEDICATION [Concomitant]
  2. POTASSIUM CHLORIDE [Concomitant]
  3. PRILOSEC [Concomitant]
  4. COUMADIN [Concomitant]
  5. DIGOXIN [Concomitant]
  6. GLUCOSAMINE (GLUCOSAMINE) [Concomitant]
  7. EYLEA [Suspect]
     Indication: AGE-RELATED MACULAR DEGENERATION
     Dosage: 2 MG, INTRAVITREAL
     Dates: start: 20120316
  8. OSCAL (CALCIUM CARBONATE) [Concomitant]
  9. GERITOL (FESOVIT /00508001/) [Concomitant]
  10. CORDARONE [Concomitant]
  11. LASIX [Concomitant]
  12. ASPIRIN [Concomitant]

REACTIONS (3)
  - IRITIS [None]
  - VISUAL ACUITY REDUCED [None]
  - VISION BLURRED [None]
